FAERS Safety Report 20815704 (Version 5)
Quarter: 2022Q3

REPORT INFORMATION
  Report Type: Report from Study
  Country: CN (occurrence: None)
  Receive Date: 20220511
  Receipt Date: 20220923
  Transmission Date: 20221026
  Serious: Yes (Hospitalization)
  Sender: FDA-Public Use
  Company Number: CN-Eisai Medical Research-EC-2022-114584

PATIENT
  Age: 51 Year
  Sex: Female
  Weight: 46 kg

DRUGS (6)
  1. LENVATINIB [Suspect]
     Active Substance: LENVATINIB
     Indication: Non-small cell lung cancer
     Route: 048
     Dates: start: 20220321, end: 20220423
  2. LENVATINIB [Suspect]
     Active Substance: LENVATINIB
     Route: 048
     Dates: start: 20220429, end: 20220513
  3. INVESTIGATIONAL PRODUCT [Suspect]
     Active Substance: INVESTIGATIONAL PRODUCT
     Indication: Non-small cell lung cancer
     Route: 042
     Dates: start: 20220321, end: 20220406
  4. INVESTIGATIONAL PRODUCT [Suspect]
     Active Substance: INVESTIGATIONAL PRODUCT
     Route: 042
     Dates: start: 20220429, end: 20220429
  5. PROBIOTIC POWDER [Concomitant]
     Indication: Abdominal distension
     Dates: start: 20220401, end: 20220426
  6. BUDESONIDE [Concomitant]
     Active Substance: BUDESONIDE
     Indication: Cough
     Dates: end: 20220406

REACTIONS (2)
  - Weight decreased [Not Recovered/Not Resolved]
  - Platelet count decreased [Recovered/Resolved]

NARRATIVE: CASE EVENT DATE: 20220405
